FAERS Safety Report 26169416 (Version 1)
Quarter: 2025Q4

REPORT INFORMATION
  Report Type: Spontaneous
  Country: US (occurrence: US)
  Receive Date: 20251217
  Receipt Date: 20251217
  Transmission Date: 20260117
  Serious: No
  Sender: ITALFARMACO
  Company Number: US-ITF-2025-003579

PATIENT
  Sex: Male

DRUGS (1)
  1. GIVINOSTAT [Suspect]
     Active Substance: GIVINOSTAT
     Dosage: UNK
     Route: 048
     Dates: start: 20250728

REACTIONS (1)
  - Blood triglycerides increased [Not Recovered/Not Resolved]

NARRATIVE: CASE EVENT DATE: 20250811
